FAERS Safety Report 10667394 (Version 1)
Quarter: 2014Q4

REPORT INFORMATION
  Report Type: Spontaneous
  Country: US (occurrence: None)
  Receive Date: 20141219
  Receipt Date: 20141219
  Transmission Date: 20150529
  Serious: Yes (Disabling, Other)
  Sender: FDA-Public Use
  Company Number: None

PATIENT
  Age: 58 Year
  Sex: Female
  Weight: 90.72 kg

DRUGS (1)
  1. LEVOFLOXACIN. [Suspect]
     Active Substance: LEVOFLOXACIN
     Indication: PNEUMONIA
     Dosage: 1 PILL, ONCE DAILY, TAKEN BY MOUTH
     Route: 048
     Dates: start: 20141125, end: 20141212

REACTIONS (11)
  - Headache [None]
  - Impaired driving ability [None]
  - Movement disorder [None]
  - Pain in extremity [None]
  - Pyrexia [None]
  - Musculoskeletal pain [None]
  - Dizziness [None]
  - Back pain [None]
  - Impaired work ability [None]
  - Balance disorder [None]
  - Hot flush [None]

NARRATIVE: CASE EVENT DATE: 20141125
